FAERS Safety Report 7079463-1 (Version None)
Quarter: 2010Q4

REPORT INFORMATION
  Report Type: 
  Country: None (occurrence: None)
  Receive Date: 20101102
  Receipt Date: 20101020
  Transmission Date: 20110411
  Serious: Yes (Hospitalization)
  Sender: FDA-Public Use
  Company Number: PL-MYLANLABS-2010S1019469

PATIENT
  Age: 27 Year
  Sex: Male

DRUGS (4)
  1. FUROSEMIDE [Suspect]
     Dosage: 2-30 TABLETS PER DAY FOR SEVERAL WEEKS; 7 TABLETS ON THE DAY OF ADMISSION
     Route: 048
  2. IBUPROFEN [Concomitant]
     Route: 065
  3. OXANDROLONE [Concomitant]
     Route: 065
  4. METANDIENONE [Concomitant]
     Route: 065

REACTIONS (3)
  - DRUG ABUSE [None]
  - PSEUDO-BARTTER SYNDROME [None]
  - RENAL FAILURE ACUTE [None]
